FAERS Safety Report 4602500-8 (Version None)
Quarter: 2005Q1

REPORT INFORMATION
  Report Type: 
  Country: None (occurrence: None)
  Receive Date: 20050307
  Receipt Date: 20050223
  Transmission Date: 20050727
  Serious: No
  Sender: FDA-Public Use
  Company Number: 05H-163-0292282

PATIENT
  Age: 77 Year
  Sex: Male

DRUGS (2)
  1. MORPHINE SULFATE [Suspect]
     Indication: PAIN
     Dosage: PCA
  2. PROMETHAZINE [Suspect]
     Indication: PAIN
     Dosage: 12.5 MG, INTRAVENOUS
     Route: 042

REACTIONS (2)
  - DRUG INTERACTION POTENTIATION [None]
  - SEDATION [None]
